FAERS Safety Report 18064382 (Version 1)
Quarter: 2020Q3

REPORT INFORMATION
  Report Type: Spontaneous
  Country: US (occurrence: US)
  Receive Date: 20200723
  Receipt Date: 20200723
  Transmission Date: 20201103
  Serious: Yes (Hospitalization)
  Sender: FDA-Public Use
  Company Number: None

PATIENT
  Age: 79 Year
  Sex: Female

DRUGS (1)
  1. PIQRAY [Suspect]
     Active Substance: ALPELISIB
     Indication: NEOPLASM MALIGNANT
     Route: 048
     Dates: start: 20200707

REACTIONS (7)
  - Pneumonia [None]
  - Speech disorder [None]
  - Amnesia [None]
  - Seizure [None]
  - Blood glucose increased [None]
  - Gait inability [None]
  - Pyrexia [None]

NARRATIVE: CASE EVENT DATE: 20200709
